FAERS Safety Report 11438250 (Version 1)
Quarter: 2015Q3

REPORT INFORMATION
  Report Type: Spontaneous
  Country: US (occurrence: None)
  Receive Date: 20150831
  Receipt Date: 20150831
  Transmission Date: 20151125
  Serious: Yes (Disabling, Other)
  Sender: FDA-Public Use
  Company Number: None

PATIENT
  Age: 57 Year
  Sex: Female
  Weight: 65.77 kg

DRUGS (1)
  1. TRAMADOL HCL [Suspect]
     Active Substance: TRAMADOL HYDROCHLORIDE
     Indication: FIBROMYALGIA
     Dosage: 50 MG 43 DAILY + AS

REACTIONS (6)
  - Tendon pain [None]
  - Myalgia [None]
  - Pain in extremity [None]
  - Activities of daily living impaired [None]
  - Gait disturbance [None]
  - Arthralgia [None]
